FAERS Safety Report 6882018-2 (Version None)
Quarter: 2010Q3

REPORT INFORMATION
  Report Type: 
  Country: None (occurrence: None)
  Receive Date: 20100728
  Receipt Date: 20100728
  Transmission Date: 20110219
  Serious: No
  Sender: FDA-Public Use
  Company Number: None

PATIENT
  Age: 44 Year
  Sex: Female

DRUGS (1)
  1. RISPERDAL [Suspect]
     Indication: AFFECTIVE DISORDER
     Dosage: 1 MG Q PM ORAL
     Route: 048
     Dates: start: 20100126, end: 20100216

REACTIONS (3)
  - AFFECTIVE DISORDER [None]
  - CONDITION AGGRAVATED [None]
  - INSOMNIA [None]
